FAERS Safety Report 7107135-3 (Version None)
Quarter: 2010Q4

REPORT INFORMATION
  Report Type: 
  Country: None (occurrence: None)
  Receive Date: 20101116
  Receipt Date: 20101008
  Transmission Date: 20110411
  Serious: No
  Sender: FDA-Public Use
  Company Number: US-ABBOTT-10P-163-0677180-00

PATIENT
  Sex: Female
  Weight: 56.75 kg

DRUGS (3)
  1. SIMCOR [Suspect]
     Indication: DYSLIPIDAEMIA
     Dosage: AT BEDTIME, 500/20MG
     Route: 048
     Dates: start: 20100928
  2. SYNTHROID [Concomitant]
     Indication: PRODUCT USED FOR UNKNOWN INDICATION
     Route: 048
  3. ASPIRIN [Concomitant]
     Indication: PRODUCT USED FOR UNKNOWN INDICATION
     Route: 048

REACTIONS (2)
  - FEELING HOT [None]
  - FLUSHING [None]
